FAERS Safety Report 25028895 (Version 1)
Quarter: 2025Q1

REPORT INFORMATION
  Report Type: Spontaneous
  Country: US (occurrence: US)
  Receive Date: 20250302
  Receipt Date: 20250302
  Transmission Date: 20250408
  Serious: Yes (Hospitalization, Other)
  Sender: NOVO NORDISK
  Company Number: US-NOVOPROD-1377029

PATIENT
  Age: 64 Year
  Sex: Male

DRUGS (2)
  1. TRESIBA [Suspect]
     Active Substance: INSULIN DEGLUDEC
     Indication: Blood glucose increased
  2. TRESIBA [Suspect]
     Active Substance: INSULIN DEGLUDEC
     Indication: Type 2 diabetes mellitus
     Dates: start: 2021

REACTIONS (2)
  - Cerebrovascular accident [Not Recovered/Not Resolved]
  - Blindness [Not Recovered/Not Resolved]

NARRATIVE: CASE EVENT DATE: 20240101
